FAERS Safety Report 7819952-2 (Version None)
Quarter: 2011Q4

REPORT INFORMATION
  Report Type: 
  Country: None (occurrence: None)
  Receive Date: 20111018
  Receipt Date: 20110120
  Transmission Date: 20120403
  Serious: No
  Sender: FDA-Public Use
  Company Number: US-ASTRAZENECA-2011SE04023

PATIENT
  Age: 88 Year
  Sex: Female

DRUGS (2)
  1. SYMBICORT [Suspect]
     Indication: ASTHMA
     Dosage: 160/4.5 MG, 2 PUFFS EVERY 12 HOURS.
     Route: 055
  2. OXYGEN [Concomitant]

REACTIONS (3)
  - DYSPNOEA [None]
  - WHEEZING [None]
  - DRUG DOSE OMISSION [None]
